FAERS Safety Report 12555846 (Version 2)
Quarter: 2016Q3

REPORT INFORMATION
  Report Type: Report from Study
  Country: CA (occurrence: CA)
  Receive Date: 20160714
  Receipt Date: 20160728
  Transmission Date: 20161109
  Serious: Yes (Other)
  Sender: FDA-Public Use
  Company Number: CA-ROCHE-1792603

PATIENT
  Age: 56 Year
  Sex: Female

DRUGS (3)
  1. REACTINE (CANADA) [Concomitant]
     Active Substance: CETIRIZINE HYDROCHLORIDE
     Indication: PRODUCT USED FOR UNKNOWN INDICATION
     Route: 065
  2. ALLEGRA [Concomitant]
     Active Substance: FEXOFENADINE HYDROCHLORIDE
     Indication: PRODUCT USED FOR UNKNOWN INDICATION
     Route: 065
  3. XOLAIR [Suspect]
     Active Substance: OMALIZUMAB
     Indication: CHRONIC SPONTANEOUS URTICARIA
     Dosage: 300 MG, EVERY 4 WEEKS
     Route: 058
     Dates: start: 20160704

REACTIONS (7)
  - Nausea [Recovered/Resolved]
  - Nervousness [Unknown]
  - Anxiety [Unknown]
  - Anaphylactic reaction [Unknown]
  - Fatigue [Unknown]
  - Throat irritation [Recovered/Resolved]
  - Hypersomnia [Unknown]

NARRATIVE: CASE EVENT DATE: 20160704
